FAERS Safety Report 26006464 (Version 1)
Quarter: 2025Q4

REPORT INFORMATION
  Report Type: Spontaneous
  Country: US (occurrence: None)
  Receive Date: 20251105
  Receipt Date: 20251105
  Transmission Date: 20260117
  Serious: Yes (Death)
  Sender: FDA-CTU
  Company Number: None

PATIENT
  Age: 66 Year
  Sex: Male

DRUGS (7)
  1. TACROLIMUS [Suspect]
     Active Substance: TACROLIMUS
     Indication: Leukaemia
     Dosage: 3 MG TWICE A DAY ORAL ?
     Route: 048
     Dates: start: 20250613, end: 20251016
  2. POSACONAZOLE [Concomitant]
     Active Substance: POSACONAZOLE
     Dates: start: 20250411, end: 20251016
  3. MYCOPHENOLIC ACID [Concomitant]
     Active Substance: MYCOPHENOLIC ACID
     Dates: start: 20250613, end: 20251016
  4. VALACYCLOVIR [Concomitant]
     Active Substance: VALACYCLOVIR HYDROCHLORIDE
     Dates: start: 20250613, end: 20251016
  5. LEVOFLOXACIN [Concomitant]
     Active Substance: LEVOFLOXACIN
     Dates: start: 20250417, end: 20251016
  6. HYDROXYZINE [Concomitant]
     Active Substance: HYDROXYZINE HYDROCHLORIDE
     Dates: start: 20250911, end: 20251016
  7. ONDANSETRON [Concomitant]
     Active Substance: ONDANSETRON
     Dates: start: 20250904, end: 20251016

REACTIONS (2)
  - Acute myeloid leukaemia [None]
  - Organ failure [None]

NARRATIVE: CASE EVENT DATE: 20251016
